FAERS Safety Report 22908133 (Version 4)
Quarter: 2023Q4

REPORT INFORMATION
  Report Type: Spontaneous
  Country: JP (occurrence: JP)
  Receive Date: 20230905
  Receipt Date: 20231030
  Transmission Date: 20240110
  Serious: Yes (Hospitalization, Other)
  Sender: FDA-Public Use
  Company Number: JP-OTSUKA-2023_023356

PATIENT
  Age: 67 Year
  Sex: Female
  Weight: 58.1 kg

DRUGS (3)
  1. REXULTI [Suspect]
     Active Substance: BREXPIPRAZOLE
     Indication: Allergy test
     Dosage: UNK
     Route: 048
     Dates: start: 20230528, end: 20230529
  2. MOSAPRIDE CITRATE [Concomitant]
     Active Substance: MOSAPRIDE CITRATE
     Indication: Abdominal distension
     Dosage: 5 MG/TIME, BID
     Route: 048
     Dates: start: 20191019
  3. BIFIDOBACTERIUM NOS [Concomitant]
     Indication: Constipation
     Dosage: 2 TABLETS/TIME, BID
     Route: 048
     Dates: start: 20200620

REACTIONS (1)
  - Schizophrenia [Recovered/Resolved]

NARRATIVE: CASE EVENT DATE: 20230622
